FAERS Safety Report 19790845 (Version 1)
Quarter: 2021Q3

REPORT INFORMATION
  Report Type: Spontaneous
  Country: GB (occurrence: GB)
  Receive Date: 20210906
  Receipt Date: 20210906
  Transmission Date: 20211014
  Serious: Yes (Other)
  Sender: FDA-Public Use
  Company Number: GB-DRREDDYS-LIT/UKI/21/0139759

PATIENT
  Age: 73 Year
  Sex: Male

DRUGS (23)
  1. ARIPIPRAZOLE. [Suspect]
     Active Substance: ARIPIPRAZOLE
     Indication: PRODUCT USED FOR UNKNOWN INDICATION
  2. DIAZEPAM. [Suspect]
     Active Substance: DIAZEPAM
  3. OLANZAPINE. [Suspect]
     Active Substance: OLANZAPINE
  4. ZOLPIDEM [Suspect]
     Active Substance: ZOLPIDEM TARTRATE
  5. BACLOFEN. [Suspect]
     Active Substance: BACLOFEN
  6. DIAZEPAM. [Suspect]
     Active Substance: DIAZEPAM
     Indication: PRODUCT USED FOR UNKNOWN INDICATION
  7. RISPERIDONE. [Suspect]
     Active Substance: RISPERIDONE
     Indication: ANTIDEPRESSANT THERAPY
  8. ARIPIPRAZOLE. [Suspect]
     Active Substance: ARIPIPRAZOLE
  9. ARIPIPRAZOLE. [Suspect]
     Active Substance: ARIPIPRAZOLE
  10. BACLOFEN. [Suspect]
     Active Substance: BACLOFEN
     Indication: PRODUCT USED FOR UNKNOWN INDICATION
  11. ARIPIPRAZOLE. [Suspect]
     Active Substance: ARIPIPRAZOLE
  12. DIAZEPAM. [Suspect]
     Active Substance: DIAZEPAM
  13. RISPERIDONE. [Suspect]
     Active Substance: RISPERIDONE
  14. ARIPIPRAZOLE. [Suspect]
     Active Substance: ARIPIPRAZOLE
  15. SERTRALINE [Suspect]
     Active Substance: SERTRALINE HYDROCHLORIDE
  16. SERTRALINE [Suspect]
     Active Substance: SERTRALINE HYDROCHLORIDE
  17. MIRTAZAPINE. [Suspect]
     Active Substance: MIRTAZAPINE
     Indication: PRODUCT USED FOR UNKNOWN INDICATION
  18. OLANZAPINE. [Suspect]
     Active Substance: OLANZAPINE
     Indication: PRODUCT USED FOR UNKNOWN INDICATION
  19. SERTRALINE [Suspect]
     Active Substance: SERTRALINE HYDROCHLORIDE
     Indication: ANTIDEPRESSANT THERAPY
  20. SERTRALINE [Suspect]
     Active Substance: SERTRALINE HYDROCHLORIDE
  21. SERTRALINE [Suspect]
     Active Substance: SERTRALINE HYDROCHLORIDE
  22. MIRTAZAPINE. [Suspect]
     Active Substance: MIRTAZAPINE
  23. ZOLPIDEM [Suspect]
     Active Substance: ZOLPIDEM TARTRATE
     Indication: PRODUCT USED FOR UNKNOWN INDICATION

REACTIONS (1)
  - Drug ineffective [Unknown]
